FAERS Safety Report 24838197 (Version 1)
Quarter: 2025Q1

REPORT INFORMATION
  Report Type: Spontaneous
  Country: IN (occurrence: IN)
  Receive Date: 20250113
  Receipt Date: 20250113
  Transmission Date: 20250408
  Serious: Yes (Other)
  Sender: NOVARTIS
  Company Number: IN-SANDOZ-SDZ2024IN068142

PATIENT
  Sex: Female

DRUGS (5)
  1. TACROLIMUS [Suspect]
     Active Substance: TACROLIMUS
     Indication: Renal transplant
     Dosage: 2 MG, QD (1 MG, BID)
     Route: 048
  2. TACROLIMUS [Suspect]
     Active Substance: TACROLIMUS
     Dosage: 3 MG, QD (1.5 MG, BID)
     Route: 048
  3. MYFORTIC [Suspect]
     Active Substance: MYCOPHENOLATE SODIUM
     Indication: Renal transplant
     Dosage: 720 MG, QD (360 MG, BID)
     Route: 048
  4. MYFORTIC [Suspect]
     Active Substance: MYCOPHENOLATE SODIUM
     Route: 048
  5. MYFORTIC [Suspect]
     Active Substance: MYCOPHENOLATE SODIUM
     Route: 048

REACTIONS (9)
  - Chronic kidney disease [Unknown]
  - New onset diabetes after transplantation [Unknown]
  - Blood pressure fluctuation [Unknown]
  - Blood glucose fluctuation [Unknown]
  - Gait disturbance [Unknown]
  - Diabetic retinopathy [Unknown]
  - Oedema peripheral [Unknown]
  - Hypertension [Unknown]
  - Product prescribing issue [Unknown]
